FAERS Safety Report 6733678-8 (Version None)
Quarter: 2010Q2

REPORT INFORMATION
  Report Type: 
  Country: None (occurrence: None)
  Receive Date: 20100520
  Receipt Date: 20100510
  Transmission Date: 20101027
  Serious: Yes (Other)
  Sender: FDA-Public Use
  Company Number: IE-WYE-H15212110

PATIENT
  Sex: Female

DRUGS (1)
  1. PROTIUM [Suspect]
     Dosage: OVERDOSE AMOUNT 120 MG (THREE 40 MG TABLETS)
     Route: 048
     Dates: start: 20100509, end: 20100509

REACTIONS (4)
  - HALLUCINATION [None]
  - MEMORY IMPAIRMENT [None]
  - OVERDOSE [None]
  - TREMOR [None]
